FAERS Safety Report 5721568-9 (Version None)
Quarter: 2008Q2

REPORT INFORMATION
  Report Type: 
  Country: None (occurrence: None)
  Receive Date: 20080429
  Receipt Date: 20070316
  Transmission Date: 20081010
  Serious: No
  Sender: FDA-Public Use
  Company Number: US-ASTRAZENECA-2007UW05253

PATIENT
  Age: 78 Year
  Sex: Male

DRUGS (4)
  1. NEXIUM [Suspect]
     Route: 048
  2. SEROQUEL [Suspect]
     Route: 048
  3. EFFEXOR XR [Concomitant]
  4. DEPAKOTE [Concomitant]
     Dosage: 250 MG AT 9 AM, 500 MG AT 5 PM
     Route: 048

REACTIONS (3)
  - CONSTIPATION [None]
  - NAUSEA [None]
  - NIGHT SWEATS [None]
